FAERS Safety Report 18200566 (Version 1)
Quarter: 2020Q3

REPORT INFORMATION
  Report Type: Spontaneous
  Country: US (occurrence: US)
  Receive Date: 20200827
  Receipt Date: 20200827
  Transmission Date: 20201103
  Serious: Yes (Other)
  Sender: FDA-Public Use
  Company Number: US-AUROBINDO-AUR-APL-2012-04385

PATIENT
  Age: 46 Year
  Sex: Female

DRUGS (3)
  1. LOSARTAN POTASSIUM TABLETS USP 100MG [Suspect]
     Active Substance: LOSARTAN POTASSIUM
     Indication: HYPERTENSION
     Dosage: 100 MG,DAILY,
     Route: 065
  2. METFORMIN;SITAGLIPTIN [Interacting]
     Active Substance: METFORMIN\SITAGLIPTIN
     Indication: DIABETES MELLITUS
     Dosage: 50/500MG TWICE DAILY
     Route: 065
  3. PREDNISONE. [Suspect]
     Active Substance: PREDNISONE
     Indication: THYROIDITIS FIBROUS CHRONIC
     Dosage: 30 MILLIGRAM
     Route: 065

REACTIONS (10)
  - Paraesthesia [Recovered/Resolved]
  - Polydipsia [Unknown]
  - Pruritus [Recovered/Resolved]
  - Rash morbilliform [Recovered/Resolved]
  - Lip oedema [Recovered/Resolved]
  - Drug interaction [Recovered/Resolved]
  - Polyuria [Unknown]
  - Skin hypopigmentation [Recovered/Resolved]
  - Angioedema [Recovered/Resolved]
  - Skin plaque [Recovered/Resolved]
